FAERS Safety Report 24558954 (Version 1)
Quarter: 2024Q4

REPORT INFORMATION
  Report Type: Spontaneous
  Country: GB (occurrence: GB)
  Receive Date: 20241029
  Receipt Date: 20241029
  Transmission Date: 20250114
  Serious: Yes (Hospitalization, Other)
  Sender: RISING PHARMACEUTICALS
  Company Number: GB-RISINGPHARMA-GB-2024RISLIT00391

PATIENT
  Age: 12 Year
  Sex: Male

DRUGS (6)
  1. AZITHROMYCIN [Suspect]
     Active Substance: AZITHROMYCIN
     Indication: Atypical mycobacterial infection
     Route: 048
  2. AMIKACIN [Concomitant]
     Active Substance: AMIKACIN
     Route: 065
  3. CEFOXITIN [Concomitant]
     Active Substance: CEFOXITIN SODIUM
     Indication: Product used for unknown indication
     Route: 042
  4. LINEZOLID [Concomitant]
     Active Substance: LINEZOLID
     Indication: Product used for unknown indication
     Route: 048
  5. CLOFAZIMINE [Concomitant]
     Active Substance: CLOFAZIMINE
     Route: 048
  6. ACETYLCYSTEINE [ACETYLCYSTEINE SODIUM] [Concomitant]
     Indication: Ototoxicity
     Route: 065

REACTIONS (2)
  - Deafness neurosensory [Recovering/Resolving]
  - Product use in unapproved indication [Unknown]
